FAERS Safety Report 6687199-1 (Version None)
Quarter: 2010Q2

REPORT INFORMATION
  Report Type: 
  Country: None (occurrence: None)
  Receive Date: 20100419
  Receipt Date: 20100407
  Transmission Date: 20101027
  Serious: Yes (Other)
  Sender: FDA-Public Use
  Company Number: US-PFIZER INC-2010009848

PATIENT
  Sex: Female
  Weight: 87.5 kg

DRUGS (2)
  1. LYRICA [Suspect]
     Indication: NEURALGIA
     Dosage: 75 MG, 2X/DAY
     Route: 048
     Dates: start: 20100121, end: 20100124
  2. ATENOLOL [Concomitant]
     Dosage: 25 MG, 1X/DAY
     Route: 048

REACTIONS (6)
  - BALANCE DISORDER [None]
  - DIZZINESS [None]
  - ERYTHEMA [None]
  - FACE OEDEMA [None]
  - OEDEMA PERIPHERAL [None]
  - VISION BLURRED [None]
